FAERS Safety Report 19709438 (Version 3)
Quarter: 2021Q4

REPORT INFORMATION
  Report Type: Spontaneous
  Country: US (occurrence: US)
  Receive Date: 20210816
  Receipt Date: 20211014
  Transmission Date: 20220303
  Serious: Yes (Death, Hospitalization, Other)
  Sender: FDA-Public Use
  Company Number: US-BIODELIVERY SCIENCES INTERNATIONAL-2021BDSI0354

PATIENT
  Age: 61 Year
  Sex: Male
  Weight: 113.5 kg

DRUGS (7)
  1. BUPRENORPHINE [Suspect]
     Active Substance: BUPRENORPHINE
     Indication: Pain
     Route: 065
     Dates: start: 201912, end: 202001
  2. BUPRENORPHINE [Suspect]
     Active Substance: BUPRENORPHINE
     Route: 065
     Dates: start: 202001, end: 202002
  3. BUPRENORPHINE [Suspect]
     Active Substance: BUPRENORPHINE
     Route: 002
     Dates: start: 202002, end: 20200316
  4. MORPHINE [Suspect]
     Active Substance: MORPHINE
     Indication: Pain
     Route: 065
     Dates: end: 201912
  5. MORPHINE [Suspect]
     Active Substance: MORPHINE
     Route: 065
     Dates: start: 20200317
  6. UNSPECIFIED INGREDIENT [Concomitant]
     Active Substance: UNSPECIFIED INGREDIENT
     Indication: Chronic obstructive pulmonary disease
     Dosage: UNKNOWN; UNKNOWN
     Route: 065
  7. UNSPECIFIED INGREDIENT [Concomitant]
     Active Substance: UNSPECIFIED INGREDIENT
     Indication: Alpha-1 antitrypsin deficiency
     Dosage: UNKNOWN
     Route: 065

REACTIONS (11)
  - Respiratory failure [Fatal]
  - Pneumonia aspiration [Fatal]
  - Pulmonary mass [Fatal]
  - Unresponsive to stimuli [Not Recovered/Not Resolved]
  - Coma [Not Recovered/Not Resolved]
  - Respiratory arrest [Recovered/Resolved]
  - Respiratory distress [Unknown]
  - Chronic obstructive pulmonary disease [Unknown]
  - Depressed level of consciousness [Unknown]
  - Therapeutic response decreased [Unknown]
  - Tremor [Recovered/Resolved]

NARRATIVE: CASE EVENT DATE: 20200101
